FAERS Safety Report 12269083 (Version 1)
Quarter: 2016Q2

REPORT INFORMATION
  Report Type: Spontaneous
  Country: US (occurrence: US)
  Receive Date: 20160414
  Receipt Date: 20160414
  Transmission Date: 20160815
  Serious: Yes (Other)
  Sender: FDA-Public Use
  Company Number: US-BAUSCH-BL-2016-005124

PATIENT
  Sex: Female
  Weight: 63.56 kg

DRUGS (14)
  1. OCUVITE [Suspect]
     Active Substance: VITAMINS
     Indication: EYE DISORDER
  2. OCUVITE [Suspect]
     Active Substance: VITAMINS
     Indication: MACULAR DEGENERATION
     Route: 048
  3. ALTACE [Concomitant]
     Active Substance: RAMIPRIL
     Indication: CARDIAC DISORDER
     Route: 048
  4. SIMVASTATIN. [Concomitant]
     Active Substance: SIMVASTATIN
     Indication: BLOOD CHOLESTEROL ABNORMAL
     Route: 048
  5. SOOTHE XP [Suspect]
     Active Substance: LIGHT MINERAL OIL\MINERAL OIL
     Indication: DRY EYE
     Dosage: ONE DROP IN BOTH EYES ONCE OR TWICE A DAY.
     Route: 047
  6. OMEPRAZOLE. [Concomitant]
     Active Substance: OMEPRAZOLE
     Indication: GASTRIC DISORDER
     Route: 048
  7. OCUVITE [Suspect]
     Active Substance: VITAMINS
     Indication: GLAUCOMA
     Dosage: ONE PILL ONCE A DAY AND SOMETIMES  TWICE A DAY
     Route: 048
     Dates: end: 2016
  8. XANAX [Concomitant]
     Active Substance: ALPRAZOLAM
     Indication: SLEEP DISORDER
     Route: 048
  9. NORVASC [Concomitant]
     Active Substance: AMLODIPINE BESYLATE
     Indication: CARDIAC DISORDER
     Route: 048
  10. OCUVITE [Suspect]
     Active Substance: VITAMINS
     Indication: EYE DISORDER
  11. LEVOTHYROXINE. [Concomitant]
     Active Substance: LEVOTHYROXINE
     Indication: THYROID DISORDER
     Route: 048
  12. OCUVITE [Suspect]
     Active Substance: VITAMINS
     Indication: MACULAR DEGENERATION
     Dosage: ONE PILL ONCE A DAY AND SOMETIMES  TWICE A DAY
     Route: 048
     Dates: end: 201602
  13. OCUVITE [Suspect]
     Active Substance: VITAMINS
     Indication: GLAUCOMA
  14. FENOFIBRATE. [Concomitant]
     Active Substance: FENOFIBRATE
     Indication: BLOOD TRIGLYCERIDES ABNORMAL
     Route: 048

REACTIONS (4)
  - Diarrhoea [Recovered/Resolved]
  - Abdominal pain upper [Recovered/Resolved]
  - Rash pruritic [Recovered/Resolved]
  - Plasma cell myeloma [Not Recovered/Not Resolved]

NARRATIVE: CASE EVENT DATE: 2015
